FAERS Safety Report 18206020 (Version 1)
Quarter: 2020Q3

REPORT INFORMATION
  Report Type: Spontaneous
  Country: US (occurrence: US)
  Receive Date: 20200827
  Receipt Date: 20200827
  Transmission Date: 20201103
  Serious: No
  Sender: FDA-Public Use
  Company Number: US-TEVA-2020-US-1819442

PATIENT
  Age: 57 Year
  Sex: Male
  Weight: 86.18 kg

DRUGS (7)
  1. CELEBREX [Concomitant]
     Active Substance: CELECOXIB
     Route: 065
  2. XELJANZ XR [Concomitant]
     Active Substance: TOFACITINIB CITRATE
     Indication: PSORIATIC ARTHROPATHY
     Route: 065
     Dates: start: 202001
  3. XELJANZ XR [Concomitant]
     Active Substance: TOFACITINIB CITRATE
     Indication: RHEUMATOID ARTHRITIS
  4. OXYCODONE [Concomitant]
     Active Substance: OXYCODONE
     Dosage: 10/325 HALF A PILL EVERY 6 HOURS
     Route: 065
  5. TRAZODONE [Concomitant]
     Active Substance: TRAZODONE HYDROCHLORIDE
     Indication: SLEEP DISORDER
     Route: 065
  6. AZITHROMYCIN TEVA [Suspect]
     Active Substance: AZITHROMYCIN
     Route: 065
  7. OMPERAZOL [Concomitant]
     Indication: HYPERCHLORHYDRIA
     Route: 065

REACTIONS (1)
  - Diarrhoea [Unknown]
